FAERS Safety Report 20343131 (Version 1)
Quarter: 2022Q1

REPORT INFORMATION
  Report Type: Report from Study
  Country: US (occurrence: US)
  Receive Date: 20220117
  Receipt Date: 20220117
  Transmission Date: 20220423
  Serious: Yes (Hospitalization)
  Sender: FDA-Public Use
  Company Number: US-BAUSCH-BL-2022-000811

PATIENT
  Age: 75 Year
  Sex: Female
  Weight: 56.750 kg

DRUGS (1)
  1. UCERIS [Suspect]
     Active Substance: BUDESONIDE
     Indication: Irritable bowel syndrome
     Dosage: MORNING
     Route: 048

REACTIONS (9)
  - Stent placement [Unknown]
  - Diarrhoea [Unknown]
  - Ear pain [Not Recovered/Not Resolved]
  - Dyspnoea [Not Recovered/Not Resolved]
  - Hypoacusis [Unknown]
  - Fatigue [Unknown]
  - Respiratory tract infection viral [Not Recovered/Not Resolved]
  - Sinusitis [Unknown]
  - Ear infection [Unknown]

NARRATIVE: CASE EVENT DATE: 20181201
